FAERS Safety Report 24277722 (Version 1)
Quarter: 2024Q3

REPORT INFORMATION
  Report Type: Report from Study
  Country: US (occurrence: US)
  Receive Date: 20240903
  Receipt Date: 20240903
  Transmission Date: 20241016
  Serious: No
  Sender: DR REDDYS
  Company Number: US-DRL-USA-CLI/USA/24/0012578

PATIENT
  Age: 58 Year
  Sex: Female
  Weight: 77.02 kg

DRUGS (1)
  1. JAVYGTOR [Suspect]
     Active Substance: SAPROPTERIN DIHYDROCHLORIDE
     Indication: Phenylketonuria
     Dosage: THREE 500 MG PACKETS BY MOUTH, ONCE PER DAY
     Route: 048

REACTIONS (1)
  - Dyspepsia [Unknown]
